FAERS Safety Report 24571228 (Version 1)
Quarter: 2024Q4

REPORT INFORMATION
  Report Type: Spontaneous
  Country: US (occurrence: US)
  Receive Date: 20241101
  Receipt Date: 20241101
  Transmission Date: 20250115
  Serious: No
  Sender: ALEXION PHARMACEUTICALS
  Company Number: US-AstraZeneca-CH-00732442AP

PATIENT

DRUGS (4)
  1. FASENRA [Suspect]
     Active Substance: BENRALIZUMAB
  2. FASENRA [Suspect]
     Active Substance: BENRALIZUMAB
  3. FASENRA [Suspect]
     Active Substance: BENRALIZUMAB
  4. FASENRA [Suspect]
     Active Substance: BENRALIZUMAB

REACTIONS (4)
  - Anxiety [Unknown]
  - Device use issue [Unknown]
  - Accidental exposure to product [Unknown]
  - Incorrect dose administered by device [Unknown]
